FAERS Safety Report 6435893-X (Version None)
Quarter: 2009Q4

REPORT INFORMATION
  Report Type: 
  Country: None (occurrence: None)
  Receive Date: 20091111
  Receipt Date: 20091103
  Transmission Date: 20100525
  Serious: Yes (Hospitalization, Other)
  Sender: FDA-Public Use
  Company Number: DE-BAYER-200935543GPV

PATIENT
  Age: 42 Year
  Sex: Female

DRUGS (1)
  1. MAGNOGRAF [Suspect]
     Indication: MAMMOGRAM
     Dosage: PATIENT GOT DOUBLE DOSE
     Route: 065
     Dates: start: 20091008

REACTIONS (9)
  - ANGIOEDEMA [None]
  - BACK PAIN [None]
  - CHILLS [None]
  - DERMATITIS ALLERGIC [None]
  - FACIAL PAIN [None]
  - GENERALISED ERYTHEMA [None]
  - HEADACHE [None]
  - OROPHARYNGEAL DISCOMFORT [None]
  - URTICARIA [None]
